FAERS Safety Report 8168622-2 (Version None)
Quarter: 2012Q1

REPORT INFORMATION
  Report Type: 
  Country: None (occurrence: None)
  Receive Date: 20120222
  Receipt Date: 20120210
  Transmission Date: 20120608
  Serious: Yes (Other)
  Sender: FDA-Public Use
  Company Number: AUR-APL-2012-00985

PATIENT
  Age: 49 Year
  Sex: Female

DRUGS (4)
  1. RAMIPRIL [Suspect]
     Indication: PRODUCT USED FOR UNKNOWN INDICATION
     Dosage: (1 DOSAGE FORMS, 1 D), ORAL
     Route: 048
     Dates: start: 20101030, end: 20111029
  2. HYDROCHLOROTHIAZIDE [Suspect]
     Indication: PRODUCT USED FOR UNKNOWN INDICATION
     Dosage: (1 DOSAGE FORMS, 1 D), ORAL
     Route: 048
     Dates: start: 20101030, end: 20111029
  3. ACETAMINOPHEN [Concomitant]
  4. ASPIRIN [Concomitant]

REACTIONS (4)
  - NAUSEA [None]
  - VERTIGO [None]
  - HEADACHE [None]
  - VOMITING [None]
